FAERS Safety Report 8315438-X (Version None)
Quarter: 2012Q2

REPORT INFORMATION
  Report Type: 
  Country: None (occurrence: None)
  Receive Date: 20120426
  Receipt Date: 20120419
  Transmission Date: 20120825
  Serious: Yes (Hospitalization, Other)
  Sender: FDA-Public Use
  Company Number: US-TEVA-330848USA

PATIENT
  Sex: Female

DRUGS (6)
  1. BUDESONIDE [Suspect]
     Indication: PNEUMONIA
     Dosage: 0.25 MG/ML
     Route: 055
     Dates: start: 20120101, end: 20120219
  2. AUGMENTIN '125' [Suspect]
     Indication: STREPTOCOCCAL INFECTION
  3. AMOXICILLIN [Suspect]
     Indication: STREPTOCOCCAL INFECTION
  4. CEFTRIAXONE [Suspect]
  5. ALBUTEROL [Suspect]
     Dosage: 0.83%
     Dates: start: 20120101, end: 20120219
  6. FLUTICASONE PROPIONATE [Concomitant]
     Dosage: 2 PUFFS

REACTIONS (15)
  - PNEUMONIA [None]
  - ASTHENIA [None]
  - ABDOMINAL PAIN [None]
  - RASH GENERALISED [None]
  - FALL [None]
  - VISION BLURRED [None]
  - SPEECH DISORDER [None]
  - TREMOR [None]
  - RESPIRATORY DISORDER [None]
  - EAR PAIN [None]
  - DYSPNOEA [None]
  - FATIGUE [None]
  - MALAISE [None]
  - ABASIA [None]
  - LYMPHADENOPATHY [None]
